FAERS Safety Report 7497735-3 (Version None)
Quarter: 2011Q2

REPORT INFORMATION
  Report Type: 
  Country: None (occurrence: None)
  Receive Date: 20110523
  Receipt Date: 20110510
  Transmission Date: 20111010
  Serious: Yes (Hospitalization)
  Sender: FDA-Public Use
  Company Number: CA-GENENTECH-317499

PATIENT
  Sex: Male

DRUGS (2)
  1. XOLAIR [Suspect]
     Dosage: 375 MG, Q2W
     Route: 058
     Dates: start: 20110419
  2. XOLAIR [Suspect]
     Indication: ASTHMA
     Dosage: 375 MG, Q2W
     Route: 058
     Dates: start: 20081112, end: 20091123

REACTIONS (5)
  - RHINORRHOEA [None]
  - FACIAL PAIN [None]
  - DYSPNOEA [None]
  - PNEUMONIA [None]
  - ASTHMA [None]
